FAERS Safety Report 7705985-3 (Version None)
Quarter: 2011Q3

REPORT INFORMATION
  Report Type: 
  Country: None (occurrence: None)
  Receive Date: 20110824
  Receipt Date: 20110809
  Transmission Date: 20111222
  Serious: Yes (Other)
  Sender: FDA-Public Use
  Company Number: PHHY2011DE24687

PATIENT
  Sex: Female

DRUGS (4)
  1. ALLOPURINOL [Concomitant]
  2. DIOVAN [Suspect]
     Indication: HYPERTENSION
     Dosage: 1 DF, QD
     Route: 048
     Dates: start: 20110101
  3. MAGNESIUM [Concomitant]
     Dosage: AS NEEDED
  4. LEVOTHYROXINE SODIUM [Concomitant]

REACTIONS (5)
  - PHARYNGEAL OEDEMA [None]
  - COUGH [None]
  - ANGIOEDEMA [None]
  - BLOOD PRESSURE SYSTOLIC INCREASED [None]
  - FEELING HOT [None]
